FAERS Safety Report 22592377 (Version 1)
Quarter: 2023Q2

REPORT INFORMATION
  Report Type: Spontaneous
  Country: FR (occurrence: FR)
  Receive Date: 20230613
  Receipt Date: 20230613
  Transmission Date: 20230721
  Serious: Yes (Other)
  Sender: FDA-Public Use
  Company Number: FR-002147023-NVSC2023FR133243

PATIENT
  Age: 75 Year
  Sex: Female

DRUGS (2)
  1. ELTROMBOPAG OLAMINE [Suspect]
     Active Substance: ELTROMBOPAG OLAMINE
     Indication: Immune thrombocytopenia
     Dosage: 25 MG, QD
     Route: 065
     Dates: start: 20230306
  2. ELTROMBOPAG OLAMINE [Suspect]
     Active Substance: ELTROMBOPAG OLAMINE
     Dosage: 50 MG (INTAKE 25 MG)
     Route: 065

REACTIONS (8)
  - Hallucination [Unknown]
  - Oral herpes [Unknown]
  - Hot flush [Unknown]
  - Gingival pain [Unknown]
  - Somnolence [Unknown]
  - Paraesthesia [Unknown]
  - Dizziness [Unknown]
  - Wrong technique in product usage process [Unknown]
